FAERS Safety Report 17202789 (Version 1)
Quarter: 2019Q4

REPORT INFORMATION
  Report Type: Spontaneous
  Country: US (occurrence: US)
  Receive Date: 20191226
  Receipt Date: 20191226
  Transmission Date: 20200122
  Serious: No
  Sender: FDA-Public Use
  Company Number: US-TEVA-2019-US-1159487

PATIENT
  Age: 58 Year
  Sex: Female

DRUGS (1)
  1. DIAZEPAM TABLETS 5MG [Suspect]
     Active Substance: DIAZEPAM
     Route: 065

REACTIONS (3)
  - Fatigue [Unknown]
  - Drug ineffective [Unknown]
  - Panic disorder [Unknown]
